FAERS Safety Report 16731979 (Version 2)
Quarter: 2019Q3

REPORT INFORMATION
  Report Type: Spontaneous
  Country: NL (occurrence: NL)
  Receive Date: 20190822
  Receipt Date: 20190823
  Transmission Date: 20191005
  Serious: Yes (Hospitalization, Other)
  Sender: FDA-Public Use
  Company Number: NL-JNJFOC-20190818274

PATIENT
  Age: 43 Year
  Sex: Female
  Weight: 100 kg

DRUGS (3)
  1. RIVAROXABAN [Suspect]
     Active Substance: RIVAROXABAN
     Indication: ATRIAL FIBRILLATION
     Dosage: 15 MG, UNK
     Route: 048
     Dates: start: 20190726, end: 20190727
  2. SOTALOL. [Concomitant]
     Active Substance: SOTALOL
     Dosage: UNK
  3. OMEPRAZOL                          /00661201/ [Concomitant]
     Active Substance: OMEPRAZOLE
     Dosage: UNK

REACTIONS (21)
  - Dizziness [Recovering/Resolving]
  - Respiratory rate decreased [Unknown]
  - Throat tightness [Recovering/Resolving]
  - Throat clearing [Recovering/Resolving]
  - Eye swelling [Recovering/Resolving]
  - Feeling drunk [Recovering/Resolving]
  - Pallor [Recovering/Resolving]
  - Dry mouth [Recovering/Resolving]
  - Feeling abnormal [Recovering/Resolving]
  - Vision blurred [Recovering/Resolving]
  - Groin pain [Recovering/Resolving]
  - Drug hypersensitivity [Recovering/Resolving]
  - Bradycardia [Unknown]
  - Mouth swelling [Recovering/Resolving]
  - Ocular hyperaemia [Recovering/Resolving]
  - Head discomfort [Recovering/Resolving]
  - Swelling face [Recovering/Resolving]
  - Chest pain [Recovering/Resolving]
  - Hypoaesthesia [Recovering/Resolving]
  - Facial pain [Recovering/Resolving]
  - Pain in extremity [Recovering/Resolving]

NARRATIVE: CASE EVENT DATE: 20190727
